FAERS Safety Report 10040499 (Version 1)
Quarter: 2014Q1

REPORT INFORMATION
  Report Type: Spontaneous
  Country: US (occurrence: US)
  Receive Date: 20140327
  Receipt Date: 20140327
  Transmission Date: 20141002
  Serious: No
  Sender: FDA-Public Use
  Company Number: US-009507513-1403USA011148

PATIENT
  Sex: Male

DRUGS (4)
  1. DORZOLAMIDE HYDROCHLORIDE (+) TIMOLOL MALEATE [Suspect]
     Dosage: 2/0.5%
     Route: 047
  2. DILTIAZEM HYDROCHLORIDE [Concomitant]
     Route: 048
  3. CRESTOR [Concomitant]
  4. DIGOXIN [Concomitant]

REACTIONS (2)
  - Retinal operation [Unknown]
  - Eye pain [Unknown]
